FAERS Safety Report 4814665-3 (Version None)
Quarter: 2005Q4

REPORT INFORMATION
  Report Type: 
  Country: None (occurrence: None)
  Receive Date: 20051028
  Receipt Date: 20041213
  Transmission Date: 20060501
  Serious: No
  Sender: FDA-Public Use
  Company Number: US-GLAXOSMITHKLINE-A0537113A

PATIENT
  Age: 47 Year
  Sex: Male

DRUGS (3)
  1. ADVAIR DISKUS 100/50 [Suspect]
     Indication: ASTHMA
     Dosage: 2BLS TWICE PER DAY
     Route: 055
  2. NEXIUM [Concomitant]
  3. ALLEGRA [Concomitant]

REACTIONS (3)
  - BLOOD PRESSURE INCREASED [None]
  - BLOOD VISCOSITY INCREASED [None]
  - DYSPNOEA [None]
